FAERS Safety Report 12154580 (Version 1)
Quarter: 2016Q1

REPORT INFORMATION
  Report Type: Spontaneous
  Country: US (occurrence: None)
  Receive Date: 20160304
  Receipt Date: 20160304
  Transmission Date: 20160526
  Serious: Yes (Other)
  Sender: FDA-Public Use
  Company Number: None

PATIENT
  Age: 10 Year
  Sex: Female
  Weight: 46 kg

DRUGS (7)
  1. KETOROLAC [Concomitant]
     Active Substance: KETOROLAC\KETOROLAC TROMETHAMINE
  2. LORATADINE. [Concomitant]
     Active Substance: LORATADINE
  3. ACYCLOVIR. [Suspect]
     Active Substance: ACYCLOVIR
     Indication: HERPES SIMPLEX MENINGITIS
     Route: 042
     Dates: start: 20150509, end: 20150513
  4. FAMOTIDINE. [Concomitant]
     Active Substance: FAMOTIDINE
  5. BISACODYL. [Concomitant]
     Active Substance: BISACODYL
  6. POLYETHYLENE GLYCOL [Concomitant]
     Active Substance: POLYETHYLENE GLYCOLS
  7. MINERAL OIL. [Concomitant]
     Active Substance: MINERAL OIL

REACTIONS (3)
  - Incorrect dose administered [None]
  - Acute kidney injury [None]
  - Drug prescribing error [None]

NARRATIVE: CASE EVENT DATE: 20150509
